FAERS Safety Report 9415536 (Version 1)
Quarter: 2013Q3

REPORT INFORMATION
  Report Type: Spontaneous
  Country: US (occurrence: US)
  Receive Date: 20130723
  Receipt Date: 20130723
  Transmission Date: 20140515
  Serious: Yes (Other)
  Sender: FDA-Public Use
  Company Number: US-ASTRAZENECA-2013SE52531

PATIENT
  Age: 65 Year
  Sex: Female
  Weight: 54 kg

DRUGS (10)
  1. SYMBICORT [Suspect]
     Indication: CHRONIC OBSTRUCTIVE PULMONARY DISEASE
     Dosage: 80 MCG, 2 PUFFS, BID
     Route: 055
     Dates: start: 2012
  2. SYMBICORT [Suspect]
     Indication: EMPHYSEMA
     Dosage: 80 MCG, 2 PUFFS, BID
     Route: 055
     Dates: start: 2012
  3. SYMBICORT [Suspect]
     Indication: LUNG NEOPLASM MALIGNANT
     Dosage: 80 MCG, 2 PUFFS, BID
     Route: 055
     Dates: start: 2012
  4. XANAX [Concomitant]
     Indication: SLEEP DISORDER
     Route: 048
     Dates: start: 2009
  5. LIPITOR [Concomitant]
     Indication: BLOOD CHOLESTEROL INCREASED
     Route: 048
     Dates: start: 2009
  6. CELEXA [Concomitant]
     Indication: ANXIETY
     Route: 048
  7. CELEXA [Concomitant]
     Indication: STRESS
     Route: 048
  8. VITAMINS [Concomitant]
  9. CALTRATE [Concomitant]
  10. IMMODIUM [Concomitant]
     Indication: IRRITABLE BOWEL SYNDROME
     Dosage: PRN

REACTIONS (4)
  - Retinal detachment [Unknown]
  - Eye disorder [Unknown]
  - Cataract [Unknown]
  - Device misuse [Unknown]
